FAERS Safety Report 19644118 (Version 1)
Quarter: 2021Q3

REPORT INFORMATION
  Report Type: Spontaneous
  Country: CN (occurrence: CN)
  Receive Date: 20210731
  Receipt Date: 20210731
  Transmission Date: 20211014
  Serious: Yes (Death, Life-Threatening, Other)
  Sender: FDA-Public Use
  Company Number: NVSC2021CN172046

PATIENT
  Age: 71 Year
  Sex: Male

DRUGS (1)
  1. ULTIBRO BREEZHALER [Suspect]
     Active Substance: GLYCOPYRRONIUM\INDACATEROL
     Indication: PRODUCT USED FOR UNKNOWN INDICATION
     Dosage: UNK
     Route: 065

REACTIONS (14)
  - Dyspnoea [Unknown]
  - Death [Fatal]
  - Sputum retention [Unknown]
  - Headache [Unknown]
  - Hypotension [Unknown]
  - Increased appetite [Unknown]
  - Overdose [Unknown]
  - Constipation [Unknown]
  - Haemorrhage [Unknown]
  - Vomiting [Unknown]
  - Productive cough [Unknown]
  - Accident at home [Unknown]
  - Bradycardia [Unknown]
  - Photophobia [Unknown]

NARRATIVE: CASE EVENT DATE: 20210703
